FAERS Safety Report 5486746-5 (Version None)
Quarter: 2007Q4

REPORT INFORMATION
  Report Type: 
  Country: None (occurrence: None)
  Receive Date: 20071016
  Receipt Date: 20071009
  Transmission Date: 20080405
  Serious: Yes (Hospitalization)
  Sender: FDA-Public Use
  Company Number: FR-AVENTIS-200713227FR

PATIENT
  Age: 61 Year
  Sex: Male

DRUGS (5)
  1. KETEK [Suspect]
     Route: 048
     Dates: start: 20070831, end: 20070902
  2. ZOCOR [Suspect]
     Indication: DRUG USE FOR UNKNOWN INDICATION
     Route: 048
  3. PROZAC [Concomitant]
     Indication: DRUG USE FOR UNKNOWN INDICATION
     Route: 048
  4. LOPRIL                             /00498401/ [Concomitant]
     Indication: DRUG USE FOR UNKNOWN INDICATION
     Route: 048
  5. UNICORDIUM [Concomitant]
     Indication: DRUG USE FOR UNKNOWN INDICATION
     Route: 048

REACTIONS (4)
  - CHOLESTASIS [None]
  - DRUG INTERACTION [None]
  - HEPATITIS CHOLESTATIC [None]
  - JAUNDICE [None]
